FAERS Safety Report 13076266 (Version 7)
Quarter: 2018Q2

REPORT INFORMATION
  Report Type: Report from Study
  Country: US (occurrence: US)
  Receive Date: 20161230
  Receipt Date: 20180405
  Transmission Date: 20180711
  Serious: Yes (Hospitalization, Other)
  Sender: FDA-Public Use
  Company Number: US-ACTELION-A-NJ2016-137053

PATIENT
  Age: 81 Year
  Sex: Female
  Weight: 81.63 kg

DRUGS (2)
  1. TRACLEER [Suspect]
     Active Substance: BOSENTAN
     Indication: PULMONARY ARTERIAL HYPERTENSION
     Dosage: 125 MG, BID
     Route: 048
     Dates: start: 20100823
  2. TRACLEER [Suspect]
     Active Substance: BOSENTAN
     Dosage: 125 MG, BID
     Route: 048

REACTIONS (14)
  - Pulmonary mass [Unknown]
  - Confusional state [Unknown]
  - Sneezing [Unknown]
  - Productive cough [Unknown]
  - Dizziness [Unknown]
  - Peripheral swelling [Not Recovered/Not Resolved]
  - Dyspnoea exertional [Unknown]
  - Bronchitis [Unknown]
  - Condition aggravated [Unknown]
  - Lung neoplasm malignant [Unknown]
  - Blood potassium decreased [Unknown]
  - Asthenia [Unknown]
  - Dyspnoea [Unknown]
  - Pneumonia [Unknown]

NARRATIVE: CASE EVENT DATE: 20161221
